FAERS Safety Report 26022620 (Version 2)
Quarter: 2025Q4

REPORT INFORMATION
  Report Type: Report from Study
  Country: CA (occurrence: CA)
  Receive Date: 20251110
  Receipt Date: 20251119
  Transmission Date: 20260118
  Serious: Yes (Hospitalization)
  Sender: ABBVIE
  Company Number: CA-ABBVIE-6537040

PATIENT
  Age: 66 Year
  Sex: Female

DRUGS (1)
  1. RINVOQ [Suspect]
     Active Substance: UPADACITINIB
     Indication: Crohn^s disease
     Dosage: FORM STRENGTH: 15 MG??TOOK TWO TABLETS 30 MILLIGRAM ORALLY ONCE DAILY
     Route: 048

REACTIONS (1)
  - Colostomy closure [Recovered/Resolved]

NARRATIVE: CASE EVENT DATE: 20251008
